FAERS Safety Report 21567478 (Version 2)
Quarter: 2022Q4

REPORT INFORMATION
  Report Type: Spontaneous
  Country: US (occurrence: US)
  Receive Date: 20221108
  Receipt Date: 20221117
  Transmission Date: 20230112
  Serious: Yes (Hospitalization, Other)
  Sender: FDA-Public Use
  Company Number: US-PFIZER INC-202201279497

PATIENT
  Age: 80 Year
  Sex: Female

DRUGS (10)
  1. SPIRONOLACTONE [Interacting]
     Active Substance: SPIRONOLACTONE
     Indication: Urinary tract infection
     Dosage: 25 MG, DAILY
  2. SULFAMETHOXAZOLE\TRIMETHOPRIM [Interacting]
     Active Substance: SULFAMETHOXAZOLE\TRIMETHOPRIM
     Indication: Urinary tract infection
     Dosage: 160/800 MG, 1 TABLET TWICE DAILY
     Route: 048
  3. AMIODARONE HYDROCHLORIDE [Concomitant]
     Active Substance: AMIODARONE HYDROCHLORIDE
     Indication: Urinary tract infection
     Dosage: 200 MG, 1X/DAY
  4. LEVOTHYROXINE SODIUM [Concomitant]
     Active Substance: LEVOTHYROXINE SODIUM
     Indication: Urinary tract infection
     Dosage: 25 UG, 1X/DAY
  5. GABAPENTIN [Concomitant]
     Active Substance: GABAPENTIN
     Indication: Urinary tract infection
     Dosage: 200 MG, 2X/DAY
  6. ASPIRIN [Concomitant]
     Active Substance: ASPIRIN
     Indication: Urinary tract infection
     Dosage: 81 MG, 1X/DAY
  7. LOSARTAN [Concomitant]
     Active Substance: LOSARTAN
     Indication: Urinary tract infection
     Dosage: 50 MG, 1X/DAY
  8. APIXABAN [Concomitant]
     Active Substance: APIXABAN
     Indication: Urinary tract infection
     Dosage: 5 MG, 2X/DAY
  9. ACETAMINOPHEN\HYDROCODONE [Concomitant]
     Active Substance: ACETAMINOPHEN\HYDROCODONE
     Indication: Urinary tract infection
     Dosage: 4X/DAY, AS NEEDED
  10. SODIUM CHLORIDE [Concomitant]
     Active Substance: SODIUM CHLORIDE
     Dosage: 1 G, 4X/DAY

REACTIONS (3)
  - Drug interaction [Unknown]
  - Hyponatraemia [Unknown]
  - Polyuria [Unknown]
